FAERS Safety Report 12539667 (Version 1)
Quarter: 2016Q3

REPORT INFORMATION
  Report Type: Spontaneous
  Country: US (occurrence: US)
  Receive Date: 20160708
  Receipt Date: 20160708
  Transmission Date: 20161109
  Serious: No
  Sender: FDA-Public Use
  Company Number: US-WATSON-2016-06731

PATIENT
  Sex: Male

DRUGS (1)
  1. DESMOPRESSIN ACETATE (ACTAVIS LABORATORIES FL) [Suspect]
     Active Substance: DESMOPRESSIN ACETATE
     Indication: PRODUCT USED FOR UNKNOWN INDICATION
     Dosage: 0.1 MG, QPM
     Route: 065

REACTIONS (1)
  - Drug ineffective [Not Recovered/Not Resolved]
